FAERS Safety Report 16652859 (Version 5)
Quarter: 2022Q2

REPORT INFORMATION
  Report Type: Spontaneous
  Country: GB (occurrence: GB)
  Receive Date: 20190731
  Receipt Date: 20220425
  Transmission Date: 20220720
  Serious: Yes (Death, Other)
  Sender: FDA-Public Use
  Company Number: None

PATIENT
  Age: 39 Year
  Sex: Male
  Weight: 91 kg

DRUGS (19)
  1. MORPHINE SULFATE [Interacting]
     Active Substance: MORPHINE SULFATE
     Indication: Product used for unknown indication
     Dosage: UNK (OVERDOSE, MEDICATION ERROR, OFF LABEL USE)
     Route: 065
  2. BUPRENORPHINE [Interacting]
     Active Substance: BUPRENORPHINE
     Indication: Drug dependence
     Dosage: UNK
     Route: 065
  3. BUPRENORPHINE [Interacting]
     Active Substance: BUPRENORPHINE
     Indication: Drug dependence
     Route: 065
     Dates: start: 20181027
  4. CODEINE PHOSPHATE [Suspect]
     Active Substance: CODEINE PHOSPHATE
     Indication: Product used for unknown indication
     Dosage: UNK
     Route: 065
  5. DIAZEPAM [Suspect]
     Active Substance: DIAZEPAM
     Indication: Product used for unknown indication
     Dosage: UNK
     Route: 065
  6. PREGABALIN [Suspect]
     Active Substance: PREGABALIN
     Indication: Product used for unknown indication
     Dosage: UNK (MEDICATION ERROR)
     Route: 065
  7. PREGABALIN [Suspect]
     Active Substance: PREGABALIN
     Indication: Product used for unknown indication
     Dosage: UNK (MEDICATION ERROR)
     Route: 065
     Dates: start: 20181027
  8. ACETAMINOPHEN [Concomitant]
     Active Substance: ACETAMINOPHEN
     Indication: Product used for unknown indication
  9. TRAZODONE [Concomitant]
     Active Substance: TRAZODONE HYDROCHLORIDE
     Indication: Product used for unknown indication
  10. TEGRETOL [Concomitant]
     Active Substance: CARBAMAZEPINE
     Indication: Product used for unknown indication
  11. PROPRANOLOL [Concomitant]
     Active Substance: PROPRANOLOL HYDROCHLORIDE
     Indication: Product used for unknown indication
  12. DABIGATRAN [Concomitant]
     Active Substance: DABIGATRAN
     Indication: Product used for unknown indication
     Route: 065
  13. CAFFEINE [Concomitant]
     Active Substance: CAFFEINE
     Indication: Product used for unknown indication
     Route: 065
  14. NOSCAPINE [Concomitant]
     Active Substance: NOSCAPINE
     Indication: Product used for unknown indication
     Route: 065
  15. ALPRAZOLAM [Concomitant]
     Active Substance: ALPRAZOLAM
     Indication: Product used for unknown indication
     Route: 065
  16. NICOTINE [Concomitant]
     Active Substance: NICOTINE
     Indication: Product used for unknown indication
     Route: 065
  17. PAPAVERINE [Concomitant]
     Active Substance: PAPAVERINE
     Indication: Product used for unknown indication
  18. ALCOHOL [Suspect]
     Active Substance: ALCOHOL
     Indication: Product used for unknown indication
     Route: 065
  19. TEGRETOL [Concomitant]
     Active Substance: CARBAMAZEPINE
     Indication: Product used for unknown indication
     Route: 065

REACTIONS (7)
  - Toxicity to various agents [Fatal]
  - Overdose [Fatal]
  - Drug interaction [Fatal]
  - Alcohol interaction [Fatal]
  - Product use in unapproved indication [Fatal]
  - Intentional product misuse [Fatal]
  - Off label use [Fatal]

NARRATIVE: CASE EVENT DATE: 20181027
